FAERS Safety Report 6671018 (Version 5)
Quarter: 2020Q3

REPORT INFORMATION
  Report Type: Spontaneous
  Country: US (occurrence: US)
  Receive Date: 20080604
  Receipt Date: 20200824
  Transmission Date: 20201103
  Serious: Yes (Death, Congenital Anomaly)
  Sender: FDA-Public Use
  Company Number: GXKR2008US04744

PATIENT
  Sex: Female

DRUGS (7)
  1. FOLIC ACID. [Suspect]
     Active Substance: FOLIC ACID
     Indication: FOETAL EXPOSURE DURING PREGNANCY
     Route: 064
  2. TACROLIMUS. [Suspect]
     Active Substance: TACROLIMUS
     Indication: FOETAL EXPOSURE DURING PREGNANCY
     Dosage: MATERNAL DOSE: 5 MG BID
     Route: 064
  3. PREDNISONE. [Suspect]
     Active Substance: PREDNISONE
     Indication: FOETAL EXPOSURE DURING PREGNANCY
     Dosage: MATERNAL DOSE: 2.5 MG BID
     Route: 064
  4. BACTRIM [Suspect]
     Active Substance: SULFAMETHOXAZOLE\TRIMETHOPRIM
     Indication: FOETAL EXPOSURE DURING PREGNANCY
     Dosage: MATERNAL DOSE: 800 MG BID
     Route: 064
  5. ACICLOVIR [Suspect]
     Active Substance: ACYCLOVIR
     Indication: FOETAL EXPOSURE DURING PREGNANCY
     Dosage: MATERNAL DOSE: 400 MG BID
     Route: 064
  6. MYCOPHENOLATE MOFETIL. [Suspect]
     Active Substance: MYCOPHENOLATE MOFETIL
     Indication: FOETAL EXPOSURE DURING PREGNANCY
     Dosage: MATERNAL DOSE: 1000 MG BID
     Route: 064
  7. MYCOPHENOLATE MOFETIL. [Suspect]
     Active Substance: MYCOPHENOLATE MOFETIL
     Dosage: MATERNAL DOSE: 500 MG BID
     Route: 064

REACTIONS (30)
  - Microphthalmos [Fatal]
  - Ventricular hypoplasia [Fatal]
  - Patent ductus arteriosus repair [Fatal]
  - Pulmonary hypertensive crisis [Fatal]
  - Pneumonia [Fatal]
  - Tracheostomy [Fatal]
  - Gastrointestinal surgery [Fatal]
  - Foetal exposure during pregnancy [Unknown]
  - Gastrointestinal disorder [Fatal]
  - Appendicectomy [Fatal]
  - Gastrostomy [Fatal]
  - Respiratory disorder [Fatal]
  - Cataract [Fatal]
  - Cardiopulmonary failure [Fatal]
  - External auditory canal atresia [Fatal]
  - Limb deformity [Fatal]
  - Spine malformation [Fatal]
  - Multiple congenital abnormalities [Fatal]
  - Mitral valve stenosis [Fatal]
  - Pulmonary valve stenosis [Fatal]
  - Rib deformity [Fatal]
  - Feeding disorder [Fatal]
  - Corneal opacity congenital [Fatal]
  - Double outlet right ventricle [Fatal]
  - Pulmonary artery banding [Fatal]
  - Respiratory distress [Fatal]
  - Cleft lip and palate [Fatal]
  - Intestinal malrotation [Fatal]
  - Hypertelorism of orbit [Fatal]
  - Microtia [Fatal]
